FAERS Safety Report 5324603-5 (Version None)
Quarter: 2007Q2

REPORT INFORMATION
  Report Type: 
  Country: None (occurrence: None)
  Receive Date: 20070508
  Receipt Date: 20070423
  Transmission Date: 20071010
  Serious: Yes (Life-Threatening)
  Sender: FDA-Public Use
  Company Number: 155777ISR

PATIENT
  Age: 34 Year
  Sex: Male

DRUGS (7)
  1. VINCRISTINE [Suspect]
     Indication: ACUTE LYMPHOCYTIC LEUKAEMIA
     Dates: start: 20050516, end: 20050523
  2. ASPARAGINASE [Suspect]
     Indication: ACUTE LYMPHOCYTIC LEUKAEMIA
     Dosage: 12000 IU PER DAY INTRAVENOUS DRIP
     Route: 041
     Dates: start: 20050516, end: 20050524
  3. PREDNISONE TAB [Suspect]
     Indication: ACUTE LYMPHOCYTIC LEUKAEMIA
  4. CHLORPROMAZINE HCL [Concomitant]
  5. BIPERIDEN HYDROCHLORIDE [Concomitant]
  6. CEFEPIME HYDROCHLORIDE [Concomitant]
  7. METOCLOPRAMIDE HYDROCHLORIDE [Concomitant]

REACTIONS (1)
  - PULMONARY EMBOLISM [None]
